FAERS Safety Report 8978047 (Version 2)
Quarter: 2012Q4

REPORT INFORMATION
  Report Type: Spontaneous
  Country: GB (occurrence: None)
  Receive Date: 20120820
  Receipt Date: 20120914
  Transmission Date: 20130627
  Serious: Yes (Other)
  Sender: FDA-Public Use
  Company Number: 218009

PATIENT
  Sex: Female

DRUGS (5)
  1. INNOHEP [Suspect]
     Indication: ANTICOAGULANT THERAPY
  2. INNOHEP [Suspect]
     Indication: PREGNANCY
  3. WARFARIN [Suspect]
     Indication: ANTICOAGULANT THERAPY
     Dosage: recommencedd ot
  4. WARFARIN [Suspect]
     Indication: PREGNANCY
     Dosage: recommencedd ot
  5. ASPIRIN (ACETYLSALICYLIC ACID) [Concomitant]

REACTIONS (4)
  - Maternal exposure during pregnancy [None]
  - Treatment noncompliance [None]
  - Transient ischaemic attack [None]
  - Abortion spontaneous [None]
